FAERS Safety Report 4685183-0 (Version None)
Quarter: 2005Q2

REPORT INFORMATION
  Report Type: 
  Country: None (occurrence: None)
  Receive Date: 20050603
  Receipt Date: 20050524
  Transmission Date: 20051028
  Serious: Yes (Hospitalization)
  Sender: FDA-Public Use
  Company Number: 2005046245

PATIENT
  Age: 73 Year
  Sex: Male
  Weight: 65 kg

DRUGS (1)
  1. SULFASALAZINE [Suspect]
     Indication: ILL-DEFINED DISORDER
     Dosage: 500 MG (500 MG, 1 IN 1 D), ORAL
     Route: 048
     Dates: end: 20050131

REACTIONS (4)
  - CREPITATIONS [None]
  - HYPOXIA [None]
  - PULMONARY FIBROSIS [None]
  - RALES [None]
